FAERS Safety Report 5952955-1 (Version None)
Quarter: 2008Q4

REPORT INFORMATION
  Report Type: 
  Country: None (occurrence: None)
  Receive Date: 20081114
  Receipt Date: 20081105
  Transmission Date: 20090506
  Serious: Yes (Hospitalization)
  Sender: FDA-Public Use
  Company Number: US-BIOGENIDEC-2008BI030053

PATIENT
  Age: 50 Year
  Sex: Male

DRUGS (3)
  1. AVONEX [Suspect]
     Indication: MULTIPLE SCLEROSIS
     Route: 030
     Dates: start: 20080701
  2. AVONEX [Suspect]
     Route: 030
     Dates: start: 19990201
  3. AVONEX [Suspect]
     Route: 030

REACTIONS (1)
  - MYOCARDIAL INFARCTION [None]
